FAERS Safety Report 8585825-3 (Version None)
Quarter: 2012Q3

REPORT INFORMATION
  Report Type: 
  Country: None (occurrence: None)
  Receive Date: 20120810
  Receipt Date: 20120731
  Transmission Date: 20120928
  Serious: Yes (Hospitalization)
  Sender: FDA-Public Use
  Company Number: US-BAYER-2012-046749

PATIENT
  Age: 28 Year
  Sex: Female

DRUGS (7)
  1. MIRTAZAPINE [Concomitant]
     Dosage: 30 MG, HS
     Route: 048
  2. XANAX [Concomitant]
     Dosage: 0.5 MG, TID
     Route: 048
  3. VICODIN [Concomitant]
     Indication: PAIN
     Dosage: 5MG-500MG TAKE 1 TABLET EVERY 4 HOURS AS NEEDED
     Route: 048
  4. YAZ [Suspect]
  5. BEYAZ [Suspect]
  6. YASMIN [Suspect]
  7. RISPERDAL [Concomitant]
     Dosage: 0.5 MG, BID
     Route: 048

REACTIONS (6)
  - ANHEDONIA [None]
  - PULMONARY EMBOLISM [None]
  - INJURY [None]
  - QUALITY OF LIFE DECREASED [None]
  - PAIN [None]
  - ANXIETY [None]
